FAERS Safety Report 11751420 (Version 1)
Quarter: 2015Q4

REPORT INFORMATION
  Report Type: Spontaneous
  Country: US (occurrence: US)
  Receive Date: 20151118
  Receipt Date: 20151118
  Transmission Date: 20160304
  Serious: Yes (Other)
  Sender: FDA-Public Use
  Company Number: US-NOVOPROD-425964

PATIENT
  Age: 37 Year
  Sex: Male
  Weight: 100.68 kg

DRUGS (7)
  1. NOVOLOG [Suspect]
     Active Substance: INSULIN ASPART
     Dosage: 15 U, UNK (BASAL)
  2. NOVOLOG [Suspect]
     Active Substance: INSULIN ASPART
     Dosage: 1.5 U/HR PRIOR TO THE EPISODE (BASAL)
     Dates: start: 20140721
  3. NOVOLOG [Suspect]
     Active Substance: INSULIN ASPART
     Dosage: 9 U, LAST DOSE OF BOLUS INSULIN PRIOR TO THE EPISODE
     Dates: start: 20140721
  4. NOVOLOG [Suspect]
     Active Substance: INSULIN ASPART
     Dosage: 37.4 U, QD (BASAL)
     Route: 058
     Dates: start: 20131010
  5. NOVOLOG [Suspect]
     Active Substance: INSULIN ASPART
     Indication: TYPE 1 DIABETES MELLITUS
     Dosage: 50 U (BOLUS)
     Route: 058
     Dates: start: 20131010
  6. NOVOLOG [Suspect]
     Active Substance: INSULIN ASPART
     Dosage: 36.6 U, UNK (BOLUS)
  7. NOVOLOG [Suspect]
     Active Substance: INSULIN ASPART
     Dosage: UNK

REACTIONS (2)
  - Hypoglycaemic unconsciousness [Recovered/Resolved]
  - Seizure [Recovered/Resolved]

NARRATIVE: CASE EVENT DATE: 20140722
